FAERS Safety Report 24260826 (Version 1)
Quarter: 2024Q3

REPORT INFORMATION
  Report Type: Spontaneous
  Country: US (occurrence: US)
  Receive Date: 20240828
  Receipt Date: 20240828
  Transmission Date: 20241017
  Serious: No
  Sender: LEXICON PHARMACEUTICALS
  Company Number: US-LEX-000412

PATIENT
  Age: 78 Year
  Sex: Female
  Weight: 70.5 kg

DRUGS (13)
  1. INPEFA [Suspect]
     Active Substance: SOTAGLIFLOZIN
     Indication: Product used for unknown indication
     Route: 048
  2. NITROGLYCERIN [Concomitant]
     Active Substance: NITROGLYCERIN
  3. SPIRONOLACTONE [Concomitant]
     Active Substance: SPIRONOLACTONE
  4. SIMVASTATIN [Concomitant]
     Active Substance: SIMVASTATIN
  5. PACERONE [Concomitant]
     Active Substance: AMIODARONE HYDROCHLORIDE
  6. LEVOTHYROXINE [Concomitant]
     Active Substance: LEVOTHYROXINE\LEVOTHYROXINE SODIUM
  7. PANTOPRAZOLE [Concomitant]
     Active Substance: PANTOPRAZOLE
  8. GLIPIZIDE [Concomitant]
     Active Substance: GLIPIZIDE
  9. ELIQUIS [Concomitant]
     Active Substance: APIXABAN
  10. ENTRESTO [Concomitant]
     Active Substance: SACUBITRIL\VALSARTAN
  11. ESCITALOPRAM OXALATE [Concomitant]
     Active Substance: ESCITALOPRAM OXALATE
  12. FENOFIBRATE [Concomitant]
     Active Substance: FENOFIBRATE
  13. CARVEDILOL [Concomitant]
     Active Substance: CARVEDILOL

REACTIONS (1)
  - Diarrhoea [Unknown]
